FAERS Safety Report 16894717 (Version 1)
Quarter: 2019Q4

REPORT INFORMATION
  Report Type: Spontaneous
  Country: GB (occurrence: GB)
  Receive Date: 20191008
  Receipt Date: 20191008
  Transmission Date: 20200122
  Serious: Yes (Other)
  Sender: FDA-Public Use
  Company Number: GB-MYLANLABS-2019M1092634

PATIENT
  Age: 54 Year

DRUGS (1)
  1. ARIPIPRAZOLE. [Suspect]
     Active Substance: ARIPIPRAZOLE
     Indication: PRODUCT USED FOR UNKNOWN INDICATION
     Dosage: UNK

REACTIONS (5)
  - Back pain [Unknown]
  - Ataxia [Unknown]
  - Craniocerebral injury [Unknown]
  - Depersonalisation/derealisation disorder [Unknown]
  - Somnolence [Unknown]
